FAERS Safety Report 13176313 (Version 1)
Quarter: 2017Q1

REPORT INFORMATION
  Report Type: Spontaneous
  Country: US (occurrence: US)
  Receive Date: 20170201
  Receipt Date: 20170201
  Transmission Date: 20170428
  Serious: Yes (Other)
  Sender: FDA-Public Use
  Company Number: US-BOIRON INC.-2017BOR00003

PATIENT
  Age: 15 Year
  Sex: Male
  Weight: 90.7 kg

DRUGS (10)
  1. COLDCALM [Suspect]
     Active Substance: HOMEOPATHICS
     Indication: EYE PAIN
  2. HERBAL TEA [Concomitant]
  3. COLDCALM [Suspect]
     Active Substance: HOMEOPATHICS
     Indication: NASAL CONGESTION
  4. VICKS NYQUIL [Concomitant]
     Active Substance: ACETAMINOPHEN\DEXTROMETHORPHAN HYDROBROMIDE\DOXYLAMINE SUCCINATE
  5. COLDCALM [Suspect]
     Active Substance: HOMEOPATHICS
     Indication: SNEEZING
  6. COLDCALM [Suspect]
     Active Substance: HOMEOPATHICS
     Indication: MALAISE
  7. GOLDEN ROOT TINCTURE [Concomitant]
  8. COLDCALM [Suspect]
     Active Substance: HOMEOPATHICS
     Indication: SINUSITIS
     Dosage: 1 DOSE EVERY 15 MINUTES FOR AN HOUR THEN 1 EVERY 2 HOURS
     Route: 048
     Dates: start: 201612, end: 20170109
  9. ECHINACEA [Concomitant]
     Active Substance: ECHINACEA, UNSPECIFIED
  10. OSCILLOCOCCINUM [Suspect]
     Active Substance: CAIRINA MOSCHATA HEART/LIVER AUTOLYSATE
     Dosage: UNK, 1X/DAY
     Dates: start: 20161226, end: 20161227

REACTIONS (7)
  - Mydriasis [Not Recovered/Not Resolved]
  - Pituitary tumour [Unknown]
  - Strabismus [Unknown]
  - Nasopharyngitis [Recovering/Resolving]
  - Chromatopsia [Recovering/Resolving]
  - Diplopia [Not Recovered/Not Resolved]
  - Asthenopia [Unknown]

NARRATIVE: CASE EVENT DATE: 20161230
